FAERS Safety Report 9841631 (Version 1)
Quarter: 2014Q1

REPORT INFORMATION
  Report Type: Spontaneous
  Country: CH (occurrence: CH)
  Receive Date: 20140124
  Receipt Date: 20140124
  Transmission Date: 20141002
  Serious: Yes (Life-Threatening, Hospitalization)
  Sender: FDA-Public Use
  Company Number: CH-SA-2014SA007143

PATIENT
  Age: 80 Year
  Sex: Male

DRUGS (9)
  1. LASIX [Suspect]
     Indication: CARDIAC FAILURE
     Route: 048
     Dates: start: 20131203, end: 20131206
  2. TOREM [Suspect]
     Indication: CARDIAC FAILURE
     Route: 048
  3. TOREM [Suspect]
     Indication: CARDIAC FAILURE
     Route: 048
     Dates: end: 20131206
  4. ENALAPRIL MALEATE/HYDROCHLOROTHIAZIDE [Suspect]
     Indication: CARDIAC FAILURE
     Route: 048
  5. ENALAPRIL MALEATE/HYDROCHLOROTHIAZIDE [Suspect]
     Indication: CARDIAC FAILURE
     Route: 048
     Dates: start: 201312, end: 20131206
  6. TRANSIPEG [Suspect]
     Indication: PRODUCT USED FOR UNKNOWN INDICATION
     Route: 048
  7. PLAVIX [Concomitant]
     Route: 048
     Dates: start: 201311
  8. CLEXANE [Concomitant]
     Route: 048
     Dates: start: 201311
  9. BELOC [Concomitant]
     Dosage: 0.5PER12 HOUR?DOSE:25MG
     Route: 048

REACTIONS (10)
  - Electrolyte imbalance [Recovered/Resolved]
  - Hypokalaemia [Recovered/Resolved]
  - Hypernatraemia [Recovered/Resolved]
  - Accidental overdose [Unknown]
  - Renal failure chronic [Recovering/Resolving]
  - Dehydration [Recovering/Resolving]
  - Arrhythmia [Unknown]
  - Bradycardia [Unknown]
  - Bundle branch block right [Unknown]
  - Supraventricular extrasystoles [Unknown]
